FAERS Safety Report 4885249-6 (Version None)
Quarter: 2005Q4

REPORT INFORMATION
  Report Type: 
  Country: None (occurrence: None)
  Receive Date: 20051220
  Receipt Date: 20050927
  Transmission Date: 20060501
  Serious: Yes (Other)
  Sender: FDA-Public Use
  Company Number: US152143

PATIENT
  Age: 71 Year
  Sex: Male

DRUGS (2)
  1. ENBREL [Suspect]
     Indication: RHEUMATOID ARTHRITIS
     Dosage: 50 MG, 1 IN 1 WEEKS
     Dates: start: 20041202, end: 20050914
  2. METHOTREXATE [Concomitant]

REACTIONS (2)
  - MALIGNANT MELANOMA [None]
  - THROMBOCYTOPENIA [None]
